FAERS Safety Report 12268487 (Version 2)
Quarter: 2016Q2

REPORT INFORMATION
  Report Type: Spontaneous
  Country: US (occurrence: US)
  Receive Date: 20160414
  Receipt Date: 20160420
  Transmission Date: 20160815
  Serious: No
  Sender: FDA-Public Use
  Company Number: US-PFIZER INC-2016214100

PATIENT
  Age: 73 Year
  Sex: Male

DRUGS (2)
  1. TOVIAZ [Suspect]
     Active Substance: FESOTERODINE FUMARATE
     Dosage: 4 MG, 3X/DAY
  2. TOVIAZ [Suspect]
     Active Substance: FESOTERODINE FUMARATE
     Indication: INCONTINENCE
     Dosage: 4 MG, 2X/DAY

REACTIONS (3)
  - Drug ineffective [Unknown]
  - Intentional overdose [Unknown]
  - Intentional product use issue [Unknown]
